FAERS Safety Report 7225655-8 (Version None)
Quarter: 2011Q1

REPORT INFORMATION
  Report Type: 
  Country: None (occurrence: None)
  Receive Date: 20110110
  Receipt Date: 20110110
  Transmission Date: 20110831
  Serious: Yes (Death)
  Sender: FDA-Public Use
  Company Number: None

PATIENT
  Age: 61 Year
  Sex: Male
  Weight: 84.369 kg

DRUGS (2)
  1. DARVOCET-N 100 [Suspect]
     Indication: INFLUENZA LIKE ILLNESS
     Dosage: 1-2 TABS Q 4-6 HRS PRN
     Dates: start: 20080904, end: 20080907
  2. DARVOCET-N 100 [Suspect]
     Indication: HEADACHE
     Dosage: 1-2 TABS Q 4-6 HRS PRN
     Dates: start: 20080904, end: 20080907

REACTIONS (5)
  - SUDDEN CARDIAC DEATH [None]
  - VENTRICULAR TACHYCARDIA [None]
  - VENTRICULAR FIBRILLATION [None]
  - CIRCULATORY COLLAPSE [None]
  - BLOOD GLUCOSE INCREASED [None]
